FAERS Safety Report 17939674 (Version 4)
Quarter: 2025Q3

REPORT INFORMATION
  Report Type: Spontaneous
  Country: EU (occurrence: EU)
  Receive Date: 20200625
  Receipt Date: 20250715
  Transmission Date: 20251021
  Serious: Yes (Death, Other)
  Sender: AUROBINDO
  Company Number: EU-EMA-DD-20200615-KUMARSINGH_A-112703

PATIENT
  Age: 40 Year
  Sex: Female

DRUGS (22)
  1. LETROZOLE [Suspect]
     Active Substance: LETROZOLE
     Indication: Breast cancer
     Route: 065
  2. TRASTUZUMAB [Suspect]
     Active Substance: TRASTUZUMAB
     Indication: Breast cancer
     Route: 042
  3. TRASTUZUMAB [Suspect]
     Active Substance: TRASTUZUMAB
     Indication: HER2 positive breast cancer
     Route: 042
     Dates: start: 200811
  4. TRASTUZUMAB [Suspect]
     Active Substance: TRASTUZUMAB
     Route: 042
     Dates: start: 200901
  5. TRASTUZUMAB [Suspect]
     Active Substance: TRASTUZUMAB
     Route: 042
     Dates: start: 200907
  6. TRASTUZUMAB [Suspect]
     Active Substance: TRASTUZUMAB
     Route: 037
     Dates: start: 200811
  7. EXEMESTANE [Concomitant]
     Active Substance: EXEMESTANE
     Indication: Breast cancer
     Route: 065
  8. EXEMESTANE [Concomitant]
     Active Substance: EXEMESTANE
     Indication: HER2 positive breast cancer
  9. METHOTREXATE [Concomitant]
     Active Substance: METHOTREXATE
     Indication: Breast cancer
     Route: 065
  10. METHOTREXATE [Concomitant]
     Active Substance: METHOTREXATE
     Indication: HER2 positive breast cancer
  11. CYTARABINE [Concomitant]
     Active Substance: CYTARABINE
     Indication: Breast cancer
     Route: 037
  12. CYTARABINE [Concomitant]
     Active Substance: CYTARABINE
     Indication: HER2 positive breast cancer
  13. CAPECITABINE [Concomitant]
     Active Substance: CAPECITABINE
     Indication: Breast cancer
     Route: 065
  14. CAPECITABINE [Concomitant]
     Active Substance: CAPECITABINE
     Indication: HER2 positive breast cancer
  15. LAPATINIB [Concomitant]
     Active Substance: LAPATINIB
     Indication: Breast cancer
     Route: 065
  16. LAPATINIB [Concomitant]
     Active Substance: LAPATINIB
     Indication: HER2 positive breast cancer
  17. PREDNISOLONE [Concomitant]
     Active Substance: PREDNISOLONE
     Indication: Breast cancer
     Route: 065
     Dates: start: 200811
  18. PREDNISOLONE [Concomitant]
     Active Substance: PREDNISOLONE
     Indication: HER2 positive breast cancer
  19. CISPLATIN [Concomitant]
     Active Substance: CISPLATIN
     Indication: Breast cancer
     Route: 065
     Dates: start: 200907
  20. CISPLATIN [Concomitant]
     Active Substance: CISPLATIN
     Indication: HER2 positive breast cancer
  21. ETOPOSIDE [Concomitant]
     Active Substance: ETOPOSIDE
     Indication: Breast cancer
     Route: 065
     Dates: start: 200907
  22. ETOPOSIDE [Concomitant]
     Active Substance: ETOPOSIDE
     Indication: HER2 positive breast cancer

REACTIONS (10)
  - Meningitis listeria [Fatal]
  - Limb discomfort [Unknown]
  - Metastases to lung [Unknown]
  - Headache [Unknown]
  - Metastases to meninges [Unknown]
  - Musculoskeletal stiffness [Unknown]
  - Metastases to central nervous system [Unknown]
  - Ejection fraction decreased [Recovered/Resolved]
  - Gait disturbance [Unknown]
  - Metastases to liver [Unknown]

NARRATIVE: CASE EVENT DATE: 20081001
